FAERS Safety Report 21554379 (Version 2)
Quarter: 2022Q4

REPORT INFORMATION
  Report Type: Spontaneous
  Country: JP (occurrence: JP)
  Receive Date: 20221104
  Receipt Date: 20221122
  Transmission Date: 20230112
  Serious: Yes (Other)
  Sender: FDA-Public Use
  Company Number: JP-ASTELLAS-2022JP016013

PATIENT
  Sex: Male

DRUGS (12)
  1. TACROLIMUS [Suspect]
     Active Substance: TACROLIMUS
     Indication: Antiphospholipid syndrome
     Dosage: 3 MG, UNKNOWN FREQ.
     Route: 064
  2. TACROLIMUS [Suspect]
     Active Substance: TACROLIMUS
     Indication: Systemic lupus erythematosus
  3. PREDNISOLONE [Concomitant]
     Active Substance: PREDNISOLONE
     Indication: Antiphospholipid syndrome
     Dosage: UNK UNK, UNKNOWN FREQ.
     Route: 064
  4. PREDNISOLONE [Concomitant]
     Active Substance: PREDNISOLONE
     Indication: Systemic lupus erythematosus
     Dosage: 30 MG/DAY, UNKNOWN FREQ.
     Route: 064
  5. PREDNISOLONE [Concomitant]
     Active Substance: PREDNISOLONE
     Dosage: UNK UNK, UNKNOWN FREQ.
     Route: 064
  6. PREDNISOLONE [Concomitant]
     Active Substance: PREDNISOLONE
     Dosage: 15 MG/DAY, UNKNOWN FREQ.
     Route: 064
  7. ASPIRIN [Concomitant]
     Active Substance: ASPIRIN
     Indication: Antiphospholipid syndrome
     Dosage: UNK UNK, UNKNOWN FREQ.
     Route: 064
  8. ASPIRIN [Concomitant]
     Active Substance: ASPIRIN
     Indication: Systemic lupus erythematosus
     Route: 064
  9. HYDROXYCHLOROQUINE SULFATE [Concomitant]
     Active Substance: HYDROXYCHLOROQUINE SULFATE
     Indication: Product used for unknown indication
     Route: 064
  10. INSULIN NOS [Concomitant]
     Active Substance: INSULIN NOS
     Indication: Glucose tolerance decreased
     Dosage: UNK UNK, UNKNOWN FREQ.
     Route: 064
  11. PRAVASTATIN SODIUM [Concomitant]
     Active Substance: PRAVASTATIN SODIUM
     Indication: Gestational hypertension
     Route: 064
  12. PRAVASTATIN SODIUM [Concomitant]
     Active Substance: PRAVASTATIN SODIUM
     Indication: Prophylaxis

REACTIONS (3)
  - Low birth weight baby [Unknown]
  - Premature baby [Unknown]
  - Foetal exposure during pregnancy [Unknown]
